FAERS Safety Report 14296764 (Version 1)
Quarter: 2017Q4

REPORT INFORMATION
  Report Type: Spontaneous
  Country: JP (occurrence: JP)
  Receive Date: 20171218
  Receipt Date: 20171218
  Transmission Date: 20180321
  Serious: Yes (Life-Threatening, Other)
  Sender: FDA-Public Use
  Company Number: PHHY2017JP184474

PATIENT
  Age: 74 Year
  Sex: Male

DRUGS (6)
  1. EPIRUBICIN [Suspect]
     Active Substance: EPIRUBICIN
     Indication: EXTRAMAMMARY PAGET^S DISEASE
     Dosage: 50 MG/M2, QW
     Route: 065
  2. EPIRUBICIN [Suspect]
     Active Substance: EPIRUBICIN
     Dosage: 80% DOSE REDUCTION ON A BIWEEKLY SCHEDULE
     Route: 065
  3. PACLITAXEL. [Suspect]
     Active Substance: PACLITAXEL
     Indication: EXTRAMAMMARY PAGET^S DISEASE
     Dosage: 120 MG/M2, QW
     Route: 065
  4. CISPLATIN. [Suspect]
     Active Substance: CISPLATIN
     Dosage: 80% DOSE REDUCTION ON A BIWEEKLY SCHEDULE.
     Route: 065
  5. CISPLATIN. [Suspect]
     Active Substance: CISPLATIN
     Indication: EXTRAMAMMARY PAGET^S DISEASE
     Dosage: 30 MG/M2, QW
     Route: 065
  6. PACLITAXEL. [Suspect]
     Active Substance: PACLITAXEL
     Dosage: 80% DOSE REDUCTION ON A BIWEEKLY SCHEDULE
     Route: 065

REACTIONS (7)
  - Anaemia [Unknown]
  - Neutropenia [Unknown]
  - Nausea [Unknown]
  - Product use in unapproved indication [Unknown]
  - Leukopenia [Unknown]
  - Thrombocytopenia [Unknown]
  - Fatigue [Unknown]
